FAERS Safety Report 10766725 (Version 2)
Quarter: 2015Q1

REPORT INFORMATION
  Report Type: Spontaneous
  Country: DE (occurrence: DE)
  Receive Date: 20150205
  Receipt Date: 20150206
  Transmission Date: 20150721
  Serious: Yes (Death, Hospitalization, Other)
  Sender: FDA-Public Use
  Company Number: PHHY2015DE013416

PATIENT
  Age: 73 Year
  Sex: Male

DRUGS (12)
  1. CICLOSPORIN [Suspect]
     Active Substance: CYCLOSPORINE
     Indication: IMMUNOSUPPRESSION
     Route: 065
  2. CICLOSPORIN [Suspect]
     Active Substance: CYCLOSPORINE
     Indication: STEM CELL TRANSPLANT
  3. ACYCLOVIR. [Concomitant]
     Active Substance: ACYCLOVIR
     Indication: INFECTION PROPHYLAXIS
     Route: 065
  4. MYCOPHENOLATE MOFETIL. [Suspect]
     Active Substance: MYCOPHENOLATE MOFETIL
     Indication: IMMUNOSUPPRESSION
     Route: 065
  5. GENTAMYCINE [Concomitant]
     Active Substance: GENTAMICIN
     Indication: ANTIBIOTIC THERAPY
     Route: 065
  6. ANTITHYMOCYTE IMMUNOGLOBULIN [Concomitant]
     Active Substance: THYMOCYTE IMMUNE GLOBULIN NOS
     Indication: CHEMOTHERAPY
     Route: 065
  7. COTRIMOXAZOLE [Concomitant]
     Active Substance: SULFAMETHOXAZOLE\TRIMETHOPRIM
     Indication: INFECTION PROPHYLAXIS
     Route: 065
  8. VANCOMYCIN [Concomitant]
     Active Substance: VANCOMYCIN
     Indication: ANTIBIOTIC THERAPY
     Route: 065
  9. MYCOPHENOLATE MOFETIL. [Suspect]
     Active Substance: MYCOPHENOLATE MOFETIL
     Indication: STEM CELL TRANSPLANT
  10. FLUDARABINE [Concomitant]
     Active Substance: FLUDARABINE PHOSPHATE
     Indication: CHEMOTHERAPY
     Route: 065
  11. TREOSULFAN [Concomitant]
     Active Substance: TREOSULFAN
     Indication: CHEMOTHERAPY
     Route: 065
  12. CLINDAMYCIN [Concomitant]
     Active Substance: CLINDAMYCIN\CLINDAMYCIN PHOSPHATE
     Indication: ANTIBIOTIC THERAPY

REACTIONS (13)
  - Bone infarction [Fatal]
  - Osteopenia [Fatal]
  - Acute graft versus host disease in skin [Recovered/Resolved]
  - Osteonecrosis [Fatal]
  - Atypical pneumonia [Unknown]
  - Arthralgia [Fatal]
  - Wound secretion [Fatal]
  - Osteomyelitis fungal [Fatal]
  - Sepsis [Unknown]
  - Osteolysis [Fatal]
  - Zygomycosis [Fatal]
  - Respiratory failure [Unknown]
  - Dyspnoea [Unknown]
